FAERS Safety Report 12990735 (Version 4)
Quarter: 2017Q4

REPORT INFORMATION
  Report Type: Spontaneous
  Country: GB (occurrence: GB)
  Receive Date: 20161201
  Receipt Date: 20171110
  Transmission Date: 20180320
  Serious: Yes (Hospitalization, Other)
  Sender: FDA-Public Use
  Company Number: GB-SA-2016SA216979

PATIENT
  Age: 50 Year

DRUGS (4)
  1. DIAZEPAM. [Suspect]
     Active Substance: DIAZEPAM
     Route: 048
  2. ZOLPIDEM [Suspect]
     Active Substance: ZOLPIDEM\ZOLPIDEM TARTRATE
     Route: 065
  3. HALOPERIDOL. [Suspect]
     Active Substance: HALOPERIDOL
     Route: 065
  4. LORAZEPAM. [Suspect]
     Active Substance: LORAZEPAM
     Route: 065

REACTIONS (5)
  - Electrocardiogram QT prolonged [Recovered/Resolved]
  - Hyporesponsive to stimuli [Recovered/Resolved]
  - Sinus bradycardia [Recovered/Resolved]
  - Electrocardiogram J wave [Recovered/Resolved]
  - Hypothermia [Recovered/Resolved]
